FAERS Safety Report 19047699 (Version 3)
Quarter: 2021Q4

REPORT INFORMATION
  Report Type: Report from Study
  Country: CA (occurrence: CA)
  Receive Date: 20210324
  Receipt Date: 20211101
  Transmission Date: 20220303
  Serious: Yes (Other)
  Sender: FDA-Public Use
  Company Number: CA-JNJFOC-20210331091

PATIENT
  Age: 55 Year
  Sex: Female

DRUGS (2)
  1. REMICADE [Suspect]
     Active Substance: INFLIXIMAB
     Indication: Crohn^s disease
     Route: 042
     Dates: start: 20130112
  2. REMICADE [Suspect]
     Active Substance: INFLIXIMAB
     Route: 042
     Dates: start: 20180719

REACTIONS (5)
  - Erythema multiforme [Unknown]
  - Decreased appetite [Unknown]
  - Gingival pain [Unknown]
  - Vitamin B12 deficiency [Unknown]
  - Oral herpes [Unknown]

NARRATIVE: CASE EVENT DATE: 20210312
